FAERS Safety Report 6214422-X (Version None)
Quarter: 2009Q2

REPORT INFORMATION
  Report Type: 
  Country: None (occurrence: None)
  Receive Date: 20090604
  Receipt Date: 20090528
  Transmission Date: 20091009
  Serious: Yes (Life-Threatening, Hospitalization)
  Sender: FDA-Public Use
  Company Number: PT-CELGENEUS-130-21880-09050193

PATIENT
  Sex: Male
  Weight: 78 kg

DRUGS (13)
  1. REVLIMID [Suspect]
     Indication: MULTIPLE MYELOMA
     Route: 048
     Dates: start: 20090320, end: 20090409
  2. REVLIMID [Suspect]
     Route: 048
     Dates: start: 20090417, end: 20090503
  3. DEXAMETHASONE [Suspect]
     Indication: MULTIPLE MYELOMA
     Route: 048
     Dates: start: 20090320, end: 20090416
  4. DEXAMETHASONE [Suspect]
     Route: 048
     Dates: start: 20090417, end: 20090503
  5. DILTIAZEM [Concomitant]
     Indication: HYPERTENSION
     Route: 048
     Dates: start: 20090403
  6. TELMISARTAN [Concomitant]
     Indication: HYPERTENSION
     Route: 048
  7. ASPIRIN [Concomitant]
     Route: 048
     Dates: start: 20090320
  8. OMEPRAZOLE [Concomitant]
     Indication: PROPHYLAXIS
     Route: 048
     Dates: start: 20090320
  9. OMEPRAZOLE [Concomitant]
     Route: 051
     Dates: start: 20090430
  10. SUCRAFATE [Concomitant]
     Indication: PROPHYLAXIS
     Route: 048
     Dates: start: 20090428
  11. HYDROXIZINE [Concomitant]
     Indication: INSOMNIA
     Route: 048
  12. DIAZEPAM [Concomitant]
     Indication: SEDATIVE THERAPY
     Route: 048
     Dates: start: 20090508
  13. VALERIAN [Concomitant]
     Indication: SEDATIVE THERAPY
     Route: 048

REACTIONS (3)
  - HYPERGLYCAEMIA [None]
  - LUNG INFECTION [None]
  - MYOCARDIAL INFARCTION [None]
